FAERS Safety Report 7025207-9 (Version None)
Quarter: 2010Q4

REPORT INFORMATION
  Report Type: 
  Country: None (occurrence: None)
  Receive Date: 20101001
  Receipt Date: 20100203
  Transmission Date: 20110411
  Serious: Yes (Hospitalization)
  Sender: FDA-Public Use
  Company Number: DE-SANOFI-AVENTIS-A04200900019

PATIENT
  Age: 70 Year
  Sex: Male
  Weight: 91.5 kg

DRUGS (16)
  1. CARVEDILOL [Suspect]
     Route: 048
  2. DIGITOXIN [Interacting]
     Route: 048
     Dates: start: 20080625, end: 20080720
  3. CLOPIDOGREL BISULFATE [Concomitant]
     Indication: CARDIOVASCULAR EVENT PROPHYLAXIS
     Dosage: UNIT DOSE: 75 MG
     Route: 048
     Dates: start: 20060401, end: 20080720
  4. CALCIUM CITRATE/SODIUM CITRATE [Concomitant]
     Indication: ACIDOSIS
     Route: 048
     Dates: end: 20080720
  5. ALLOPURINOL [Concomitant]
     Route: 048
  6. ASPIRIN [Concomitant]
     Indication: CARDIOVASCULAR EVENT PROPHYLAXIS
     Dosage: UNIT DOSE: 100 MG
     Route: 048
     Dates: start: 20000101
  7. DIOVANE [Concomitant]
     Route: 048
  8. EBRANTIL [Concomitant]
     Route: 048
  9. EINSALPHA [Concomitant]
     Indication: HYPERPARATHYROIDISM SECONDARY
     Route: 048
     Dates: start: 20080520
  10. LOCOL [Concomitant]
     Route: 048
  11. PANTOPRAZOLE SODIUM [Concomitant]
     Route: 048
  12. TOREM /GFR/ [Concomitant]
     Route: 048
  13. XIPAMIDE [Concomitant]
     Route: 048
     Dates: start: 20080625
  14. MOXONIDINE [Concomitant]
     Route: 048
  15. NEORECORMON ^ROCHE^ [Concomitant]
     Dosage: DOSE TEXT: 4000 IU 2X MONTHLY
     Route: 058
  16. METAMIZOLE [Concomitant]
     Route: 048
     Dates: start: 19900101

REACTIONS (6)
  - CARDIOACTIVE DRUG LEVEL INCREASED [None]
  - DRUG INTERACTION [None]
  - GENERAL PHYSICAL HEALTH DETERIORATION [None]
  - MALAISE [None]
  - NAUSEA [None]
  - RENAL FAILURE CHRONIC [None]
